FAERS Safety Report 24571563 (Version 1)
Quarter: 2024Q4

REPORT INFORMATION
  Report Type: Spontaneous
  Country: NL (occurrence: NL)
  Receive Date: 20241101
  Receipt Date: 20241101
  Transmission Date: 20250114
  Serious: Yes (Other)
  Sender: AUROBINDO
  Company Number: NL-LRB-01006250

PATIENT
  Age: 77 Year
  Sex: Female
  Weight: 60 kg

DRUGS (2)
  1. ATORVASTATIN CALCIUM [Suspect]
     Active Substance: ATORVASTATIN CALCIUM
     Indication: Retinal vascular occlusion
     Dosage: 10 MILLIGRAM, ONCE A DAY (1 TABLET ONCE A DAY)
     Route: 065
     Dates: start: 20160101, end: 20240126
  2. ASPIRIN [Concomitant]
     Active Substance: ASPIRIN
     Indication: Product used for unknown indication
     Dosage: 80 MILLIGRAM (TABLET, 80 MG (MILLIGRAM))
     Route: 065

REACTIONS (2)
  - Dementia [Recovering/Resolving]
  - Headache [Recovering/Resolving]
